FAERS Safety Report 16595360 (Version 2)
Quarter: 2019Q3

REPORT INFORMATION
  Report Type: Report from Study
  Country: None (occurrence: CA)
  Receive Date: 20190718
  Receipt Date: 20190923
  Transmission Date: 20191004
  Serious: Yes (Hospitalization, Other)
  Sender: FDA-Public Use
  Company Number: CA-ABBVIE-19K-028-2856923-00

PATIENT
  Age: 59 Year
  Sex: Male

DRUGS (1)
  1. HUMIRA [Suspect]
     Active Substance: ADALIMUMAB
     Indication: RHEUMATOID ARTHRITIS
     Route: 058
     Dates: start: 20171120, end: 201907

REACTIONS (4)
  - Pneumothorax [Unknown]
  - Peripheral swelling [Unknown]
  - Back pain [Unknown]
  - General symptom [Unknown]

NARRATIVE: CASE EVENT DATE: 201907
